FAERS Safety Report 15600706 (Version 1)
Quarter: 2018Q4

REPORT INFORMATION
  Report Type: Report from Study
  Country: US (occurrence: US)
  Receive Date: 20181109
  Receipt Date: 20181109
  Transmission Date: 20190205
  Serious: Yes (Hospitalization)
  Sender: FDA-Public Use
  Company Number: US-GILEAD-2018-0372486

PATIENT
  Age: 42 Year
  Sex: Female

DRUGS (10)
  1. SODIUM CHLORIDE. [Concomitant]
     Active Substance: SODIUM CHLORIDE
  2. FEROSUL [Concomitant]
  3. FERROUS SULFATE. [Concomitant]
     Active Substance: FERROUS SULFATE
  4. KETOROLAC [Concomitant]
     Active Substance: KETOROLAC\KETOROLAC TROMETHAMINE
  5. FLUTICASONE. [Concomitant]
     Active Substance: FLUTICASONE
  6. OMEPRAZOLE. [Concomitant]
     Active Substance: OMEPRAZOLE
  7. PREDNISOLONE. [Concomitant]
     Active Substance: PREDNISOLONE
  8. SUMATRIPTAN. [Concomitant]
     Active Substance: SUMATRIPTAN
  9. AMBRISENTAN [Suspect]
     Active Substance: AMBRISENTAN
     Indication: PULMONARY ARTERIAL HYPERTENSION
     Dosage: 10 MG, QD
     Route: 065
     Dates: start: 20171027
  10. OFLOXACIN. [Concomitant]
     Active Substance: OFLOXACIN

REACTIONS (2)
  - Intentional dose omission [Unknown]
  - Eye operation [Recovered/Resolved]

NARRATIVE: CASE EVENT DATE: 20180930
